FAERS Safety Report 5482018-3 (Version None)
Quarter: 2007Q4

REPORT INFORMATION
  Report Type: 
  Country: None (occurrence: None)
  Receive Date: 20071005
  Receipt Date: 20070927
  Transmission Date: 20080405
  Serious: Yes (Death, Hospitalization)
  Sender: FDA-Public Use
  Company Number: 2007US002173

PATIENT
  Age: 61 Year
  Sex: Female

DRUGS (35)
  1. PROGRAF [Suspect]
     Indication: LUNG TRANSPLANT
     Dosage: 2.5 MG, BID, ORAL; 3.5 MG, BID, ORAL; 3 MG, BID, ORAL; 3.5 MG, BID, ORAL; 4 MG, BID, ORAL; 5 MG, BID
     Route: 048
     Dates: start: 20030316, end: 20030410
  2. PROGRAF [Suspect]
     Indication: LUNG TRANSPLANT
     Dosage: 2.5 MG, BID, ORAL; 3.5 MG, BID, ORAL; 3 MG, BID, ORAL; 3.5 MG, BID, ORAL; 4 MG, BID, ORAL; 5 MG, BID
     Route: 048
     Dates: start: 20030410, end: 20030414
  3. PROGRAF [Suspect]
     Indication: LUNG TRANSPLANT
     Dosage: 2.5 MG, BID, ORAL; 3.5 MG, BID, ORAL; 3 MG, BID, ORAL; 3.5 MG, BID, ORAL; 4 MG, BID, ORAL; 5 MG, BID
     Route: 048
     Dates: start: 20030414, end: 20030417
  4. PROGRAF [Suspect]
     Indication: LUNG TRANSPLANT
     Dosage: 2.5 MG, BID, ORAL; 3.5 MG, BID, ORAL; 3 MG, BID, ORAL; 3.5 MG, BID, ORAL; 4 MG, BID, ORAL; 5 MG, BID
     Route: 048
     Dates: start: 20030417, end: 20030513
  5. PROGRAF [Suspect]
     Indication: LUNG TRANSPLANT
     Dosage: 2.5 MG, BID, ORAL; 3.5 MG, BID, ORAL; 3 MG, BID, ORAL; 3.5 MG, BID, ORAL; 4 MG, BID, ORAL; 5 MG, BID
     Route: 048
     Dates: start: 20030513, end: 20030606
  6. PROGRAF [Suspect]
     Indication: LUNG TRANSPLANT
     Dosage: 2.5 MG, BID, ORAL; 3.5 MG, BID, ORAL; 3 MG, BID, ORAL; 3.5 MG, BID, ORAL; 4 MG, BID, ORAL; 5 MG, BID
     Route: 048
     Dates: start: 20030606, end: 20030815
  7. PROGRAF [Suspect]
     Indication: LUNG TRANSPLANT
     Dosage: 2.5 MG, BID, ORAL; 3.5 MG, BID, ORAL; 3 MG, BID, ORAL; 3.5 MG, BID, ORAL; 4 MG, BID, ORAL; 5 MG, BID
     Route: 048
     Dates: start: 20040109, end: 20040401
  8. PROGRAF [Suspect]
     Indication: LUNG TRANSPLANT
     Dosage: 2.5 MG, BID, ORAL; 3.5 MG, BID, ORAL; 3 MG, BID, ORAL; 3.5 MG, BID, ORAL; 4 MG, BID, ORAL; 5 MG, BID
     Route: 048
     Dates: start: 20040401, end: 20040504
  9. PROGRAF [Suspect]
     Indication: LUNG TRANSPLANT
     Dosage: 2.5 MG, BID, ORAL; 3.5 MG, BID, ORAL; 3 MG, BID, ORAL; 3.5 MG, BID, ORAL; 4 MG, BID, ORAL; 5 MG, BID
     Route: 048
     Dates: start: 20030815, end: 20040609
  10. PROGRAF [Suspect]
     Indication: LUNG TRANSPLANT
     Dosage: 2.5 MG, BID, ORAL; 3.5 MG, BID, ORAL; 3 MG, BID, ORAL; 3.5 MG, BID, ORAL; 4 MG, BID, ORAL; 5 MG, BID
     Route: 048
     Dates: start: 20040504, end: 20041105
  11. PROGRAF [Suspect]
     Indication: LUNG TRANSPLANT
     Dosage: 2.5 MG, BID, ORAL; 3.5 MG, BID, ORAL; 3 MG, BID, ORAL; 3.5 MG, BID, ORAL; 4 MG, BID, ORAL; 5 MG, BID
     Route: 048
     Dates: start: 20041105, end: 20050210
  12. PROGRAF [Suspect]
     Indication: LUNG TRANSPLANT
     Dosage: 2.5 MG, BID, ORAL; 3.5 MG, BID, ORAL; 3 MG, BID, ORAL; 3.5 MG, BID, ORAL; 4 MG, BID, ORAL; 5 MG, BID
     Route: 048
     Dates: start: 20050210, end: 20050302
  13. PROGRAF [Suspect]
     Indication: LUNG TRANSPLANT
     Dosage: 2.5 MG, BID, ORAL; 3.5 MG, BID, ORAL; 3 MG, BID, ORAL; 3.5 MG, BID, ORAL; 4 MG, BID, ORAL; 5 MG, BID
     Route: 048
     Dates: start: 20050302, end: 20050421
  14. PROGRAF [Suspect]
     Indication: LUNG TRANSPLANT
     Dosage: 2.5 MG, BID, ORAL; 3.5 MG, BID, ORAL; 3 MG, BID, ORAL; 3.5 MG, BID, ORAL; 4 MG, BID, ORAL; 5 MG, BID
     Route: 048
     Dates: start: 20050421, end: 20050602
  15. PROGRAF [Suspect]
     Indication: LUNG TRANSPLANT
     Dosage: 2.5 MG, BID, ORAL; 3.5 MG, BID, ORAL; 3 MG, BID, ORAL; 3.5 MG, BID, ORAL; 4 MG, BID, ORAL; 5 MG, BID
     Route: 048
     Dates: start: 20050602, end: 20050616
  16. PROGRAF [Suspect]
     Indication: LUNG TRANSPLANT
     Dosage: 2.5 MG, BID, ORAL; 3.5 MG, BID, ORAL; 3 MG, BID, ORAL; 3.5 MG, BID, ORAL; 4 MG, BID, ORAL; 5 MG, BID
     Route: 048
     Dates: start: 20050616, end: 20050728
  17. PROGRAF [Suspect]
     Indication: LUNG TRANSPLANT
     Dosage: 2.5 MG, BID, ORAL; 3.5 MG, BID, ORAL; 3 MG, BID, ORAL; 3.5 MG, BID, ORAL; 4 MG, BID, ORAL; 5 MG, BID
     Route: 048
     Dates: start: 20050728
  18. BACTRIM DS [Concomitant]
  19. CALCIUM CARBONATE [Concomitant]
  20. MULTIVITAMIN [Concomitant]
  21. PIOGLITAZONE HCL [Concomitant]
  22. METOPROLOL SUCCINATE [Concomitant]
  23. GLIPIZIDE [Concomitant]
  24. LATANOPROST [Concomitant]
  25. BRIMONIDINE (BRIMONIDINE TARTRATE) [Concomitant]
  26. RABEPRAZOLE SODIUM [Concomitant]
  27. SIROLIMUS (SIROLIMUS) [Concomitant]
  28. NPH INSULIN (INSULIN INJECTION, ISOPHANE) [Concomitant]
  29. ALBUTEROL [Concomitant]
  30. TIOTROPIUM (TIOTROPIUM) [Concomitant]
  31. CLONAZEPAM [Concomitant]
  32. INSULIN-HM R (INSULIN HUMAN) [Concomitant]
  33. PREDNISONE TAB [Concomitant]
  34. LORATA-DINE D (PSEUDOEPHEDRINE SULFATE, LORATADINE) [Concomitant]
  35. OXYGEN (OXYGEN) [Concomitant]

REACTIONS (3)
  - CONFUSIONAL STATE [None]
  - LETHARGY [None]
  - RESPIRATORY FAILURE [None]
